FAERS Safety Report 13485231 (Version 1)
Quarter: 2017Q2

REPORT INFORMATION
  Report Type: Spontaneous
  Country: US (occurrence: US)
  Receive Date: 20170425
  Receipt Date: 20170425
  Transmission Date: 20170830
  Serious: Yes (Hospitalization, Other)
  Sender: FDA-Public Use
  Company Number: US-TEVA-735928ACC

PATIENT
  Age: 74 Year
  Sex: Female

DRUGS (1)
  1. FENTAPAT-A [Suspect]
     Active Substance: FENTANYL
     Indication: PAIN
     Dates: start: 2013, end: 20170306

REACTIONS (9)
  - Fall [Unknown]
  - Poor quality sleep [Unknown]
  - Surgery [Unknown]
  - Restless legs syndrome [Unknown]
  - Adverse event [Unknown]
  - Withdrawal syndrome [Unknown]
  - Asthenia [Recovering/Resolving]
  - Injury [Unknown]
  - Memory impairment [Recovering/Resolving]

NARRATIVE: CASE EVENT DATE: 20170301
